FAERS Safety Report 4593867-8 (Version None)
Quarter: 2005Q1

REPORT INFORMATION
  Report Type: 
  Country: None (occurrence: None)
  Receive Date: 20050301
  Receipt Date: 20050218
  Transmission Date: 20050727
  Serious: Yes (Other)
  Sender: FDA-Public Use
  Company Number: US-ROCHE-396201

PATIENT
  Age: 76 Year
  Sex: Male

DRUGS (3)
  1. NAPROSYN [Suspect]
     Dosage: TAKEN FOR 2 DAYS IN EARLY OCTOBER 2004. DRUG REPORTED AS 'ENTERIC COATED NAPROXEN, DELAYED RELEASE'.
     Route: 048
     Dates: start: 20041015, end: 20041015
  2. HYTRIN [Concomitant]
  3. PROSCAR [Concomitant]

REACTIONS (1)
  - URINARY RETENTION [None]
